FAERS Safety Report 7441807-6 (Version None)
Quarter: 2011Q2

REPORT INFORMATION
  Report Type: 
  Country: None (occurrence: None)
  Receive Date: 20110428
  Receipt Date: 20110414
  Transmission Date: 20111010
  Serious: No
  Sender: FDA-Public Use
  Company Number: JP-JNJFOC-20110406906

PATIENT

DRUGS (2)
  1. DUROTEP MT [Suspect]
     Indication: METASTASES TO BONE
     Route: 062
  2. DUROTEP MT [Suspect]
     Indication: CANCER PAIN
     Route: 062

REACTIONS (2)
  - DRUG PRESCRIBING ERROR [None]
  - WRONG TECHNIQUE IN DRUG USAGE PROCESS [None]
